FAERS Safety Report 19819680 (Version 16)
Quarter: 2023Q4

REPORT INFORMATION
  Report Type: Spontaneous
  Country: CA (occurrence: CA)
  Receive Date: 20210913
  Receipt Date: 20231108
  Transmission Date: 20240109
  Serious: Yes (Hospitalization, Other)
  Sender: FDA-Public Use
  Company Number: CA-CELLTRION INC.-2020CA028671

PATIENT

DRUGS (38)
  1. INFLECTRA [Suspect]
     Active Substance: INFLIXIMAB-DYYB
     Indication: Colitis ulcerative
     Dosage: 400 MG (7.5 MG/KG) Q 2, 6 WEEKS, THEN EVERY 8 WEEKS
     Route: 042
     Dates: start: 20191009, end: 20200609
  2. INFLECTRA [Suspect]
     Active Substance: INFLIXIMAB-DYYB
     Indication: Crohn^s disease
     Dosage: 400 MG Q 2, 6 WEEKS, THEN EVERY 8 WEEKS, WEEK 0 DOSE AT HOSPITAL
     Route: 042
     Dates: start: 20200904
  3. INFLECTRA [Suspect]
     Active Substance: INFLIXIMAB-DYYB
     Dosage: 400 MG EVERY 2, 6 WEEKS, THEN EVERY 8 WEEKS
     Route: 042
     Dates: start: 20200930
  4. INFLECTRA [Suspect]
     Active Substance: INFLIXIMAB-DYYB
     Dosage: 700 MG, EVERY 8 WEEKS
     Route: 042
     Dates: start: 20201125
  5. INFLECTRA [Suspect]
     Active Substance: INFLIXIMAB-DYYB
     Dosage: 700 MG, EVERY 8 WEEKS
     Route: 042
     Dates: start: 20210120
  6. INFLECTRA [Suspect]
     Active Substance: INFLIXIMAB-DYYB
     Dosage: 700 MG, EVERY 8 WEEKS
     Route: 042
     Dates: start: 20210323
  7. INFLECTRA [Suspect]
     Active Substance: INFLIXIMAB-DYYB
     Dosage: 700 MG, EVERY 8 WEEKS
     Route: 042
     Dates: start: 20210521
  8. INFLECTRA [Suspect]
     Active Substance: INFLIXIMAB-DYYB
     Dosage: 700 MG, EVERY 8 WEEKS
     Route: 042
     Dates: start: 20210716
  9. INFLECTRA [Suspect]
     Active Substance: INFLIXIMAB-DYYB
     Dosage: 700 MG, EVERY 7 WEEKS
     Route: 042
     Dates: start: 20210830
  10. INFLECTRA [Suspect]
     Active Substance: INFLIXIMAB-DYYB
     Dosage: 700 MG, EVERY 7 WEEKS
     Route: 042
     Dates: start: 20210830
  11. INFLECTRA [Suspect]
     Active Substance: INFLIXIMAB-DYYB
     Dosage: 700 MG, EVERY 7 WEEKS
     Route: 042
     Dates: start: 20211021
  12. INFLECTRA [Suspect]
     Active Substance: INFLIXIMAB-DYYB
     Dosage: 800 MG, EVERY 7 WEEK
     Route: 042
     Dates: start: 20211207
  13. INFLECTRA [Suspect]
     Active Substance: INFLIXIMAB-DYYB
     Dosage: 700 MG, EVERY 7 WEEKS
     Route: 042
     Dates: start: 20220318
  14. INFLECTRA [Suspect]
     Active Substance: INFLIXIMAB-DYYB
     Dosage: 800 MG, EVERY 7 WEEKS
     Route: 042
     Dates: start: 20220505
  15. INFLECTRA [Suspect]
     Active Substance: INFLIXIMAB-DYYB
     Dosage: 800 MG, EVERY 7 WEEKS
     Route: 042
     Dates: start: 20220623
  16. INFLECTRA [Suspect]
     Active Substance: INFLIXIMAB-DYYB
     Dosage: 800 MG, EVERY 7 WEEKS
     Route: 042
     Dates: start: 20220811
  17. INFLECTRA [Suspect]
     Active Substance: INFLIXIMAB-DYYB
     Dosage: 800 MG, EVERY 7 WEEKS
     Route: 042
     Dates: start: 20220926
  18. INFLECTRA [Suspect]
     Active Substance: INFLIXIMAB-DYYB
     Dosage: 800 MG, EVERY 7 WEEKS
     Route: 042
     Dates: start: 20221116
  19. INFLECTRA [Suspect]
     Active Substance: INFLIXIMAB-DYYB
     Dosage: 800 MG, EVERY 7 WEEKS
     Route: 042
     Dates: start: 20230103
  20. INFLECTRA [Suspect]
     Active Substance: INFLIXIMAB-DYYB
     Dosage: 800 MG, EVERY 7 WEEKS
     Route: 042
     Dates: start: 20230222
  21. INFLECTRA [Suspect]
     Active Substance: INFLIXIMAB-DYYB
     Dosage: 800 MG, EVERY 7 WEEKS
     Route: 042
     Dates: start: 20230410
  22. INFLECTRA [Suspect]
     Active Substance: INFLIXIMAB-DYYB
     Dosage: 800 MG, EVERY 7 WEEKS
     Route: 042
     Dates: start: 20230529
  23. INFLECTRA [Suspect]
     Active Substance: INFLIXIMAB-DYYB
     Dosage: 800 MG, EVERY 7 WEEKS
     Route: 042
     Dates: start: 20230717
  24. INFLECTRA [Suspect]
     Active Substance: INFLIXIMAB-DYYB
     Dosage: 112 MG (OUT OF 800MG) ADMINISTERED AS PER NURSE, EVERY 7 WEEKS
     Route: 042
     Dates: start: 20231024
  25. BENADRYL [Concomitant]
     Active Substance: DIPHENHYDRAMINE HYDROCHLORIDE
     Indication: Premedication
     Dosage: UNK
     Dates: start: 20230717, end: 20230717
  26. GRAVOL [Concomitant]
     Active Substance: DIMENHYDRINATE
     Indication: Premedication
     Dosage: 25 MG, AS NEEDED (PRIOR TO INFLECTRA DOSE)
     Route: 042
     Dates: start: 20230222, end: 20230222
  27. HYDROCORTISONE [Concomitant]
     Active Substance: HYDROCORTISONE
     Indication: Premedication
     Dosage: UNK
     Dates: start: 20230717, end: 20230717
  28. LORAZEPAM [Concomitant]
     Active Substance: LORAZEPAM
     Dosage: 1 DF, DOSAGE INFO UNKNOWN, DRUG ONGOING
     Route: 065
  29. LORAZEPAM [Concomitant]
     Active Substance: LORAZEPAM
     Dosage: AS NEEDED
  30. ONDANSETRON [Concomitant]
     Active Substance: ONDANSETRON
     Dosage: 1 DF, DRUG ONGOING, DOSAGE INFO UNKNOWN
     Route: 065
  31. ONDANSETRON [Concomitant]
     Active Substance: ONDANSETRON
     Dosage: 8 MG, AS NEEDED
  32. PREDNISONE [Concomitant]
     Active Substance: PREDNISONE
     Dosage: 1 DF, DOSAGE INFO UNKNOWN, DRUG ONGOING
     Route: 065
  33. TYLENOL [Concomitant]
     Active Substance: ACETAMINOPHEN
     Indication: Premedication
     Dosage: 1 DF, AS NEEDED (DOSE - PRN , DOSAGE INFO UNKNOWN, DRUG ONGOING)
     Route: 065
  34. TYLENOL [Concomitant]
     Active Substance: ACETAMINOPHEN
     Dosage: UNK
     Dates: start: 20230717, end: 20230717
  35. TYLENOL [Concomitant]
     Active Substance: ACETAMINOPHEN
     Dosage: 1 DF, AS NEEDED (DOSE - PRN , DOSAGE INFO UNKNOWN, DRUG ONGOING)
     Route: 065
  36. CHOLECALCIFEROL [Concomitant]
     Active Substance: CHOLECALCIFEROL
     Dosage: 1 DF, DOSAGE INFO UNKNOWN, DRUG ONGOING
     Route: 065
  37. CALCIUM CARBONATE [Concomitant]
     Active Substance: CALCIUM CARBONATE
     Dosage: 1 DF, DOSAGE INFO UNKNOWN, DRUG ONGOING
  38. DIMENHYDRINATE [Concomitant]
     Active Substance: DIMENHYDRINATE
     Dosage: 1 DF, (DOSAGE INFO UNKNOWN, DRUG ONGOING)

REACTIONS (27)
  - Nausea [Recovered/Resolved]
  - Vomiting [Recovering/Resolving]
  - Abdominal pain [Recovering/Resolving]
  - Hyperhidrosis [Recovering/Resolving]
  - Chest discomfort [Recovered/Resolved]
  - Weight increased [Unknown]
  - Infusion related reaction [Recovered/Resolved]
  - Back pain [Recovered/Resolved]
  - Drug ineffective [Unknown]
  - Condition aggravated [Recovered/Resolved]
  - Eating disorder [Recovering/Resolving]
  - Eye swelling [Recovered/Resolved]
  - Ocular hyperaemia [Recovered/Resolved]
  - Urticaria [Recovered/Resolved]
  - Throat irritation [Recovered/Resolved]
  - Dyspnoea [Recovering/Resolving]
  - Muscle spasms [Recovering/Resolving]
  - Pallor [Recovering/Resolving]
  - Flushing [Recovering/Resolving]
  - Blood pressure fluctuation [Unknown]
  - Off label use [Unknown]
  - Off label use [Unknown]
  - Off label use [Unknown]
  - Intentional product use issue [Unknown]
  - Incorrect dose administered [Unknown]
  - Weight decreased [Recovering/Resolving]
  - Decreased appetite [Recovering/Resolving]

NARRATIVE: CASE EVENT DATE: 20200930
